FAERS Safety Report 5608536-2 (Version None)
Quarter: 2008Q1

REPORT INFORMATION
  Report Type: 
  Country: None (occurrence: None)
  Receive Date: 20080125
  Receipt Date: 20080114
  Transmission Date: 20080703
  Serious: Yes (Other)
  Sender: FDA-Public Use
  Company Number: GXKR2008JP00743

PATIENT
  Age: 12 Year
  Sex: Male

DRUGS (2)
  1. TRIAMCINOLONE [Suspect]
     Indication: MACULAR HOLE
     Dosage: INTRAVITREAL IN
  2. SULFUR HEXAFLUORIDE (SULFUR HEXAFLUORIDE) [Concomitant]

REACTIONS (5)
  - IMPAIRED HEALING [None]
  - MACULAR HOLE [None]
  - POST PROCEDURAL COMPLICATION [None]
  - RETINAL CYST [None]
  - VISUAL ACUITY REDUCED [None]
